FAERS Safety Report 25102803 (Version 1)
Quarter: 2025Q1

REPORT INFORMATION
  Report Type: Report from Study
  Country: CA (occurrence: CA)
  Receive Date: 20250321
  Receipt Date: 20250321
  Transmission Date: 20250408
  Serious: Yes (Hospitalization)
  Sender: ABBVIE
  Company Number: CA-ABBVIE-6183007

PATIENT
  Age: 54 Year
  Sex: Male

DRUGS (4)
  1. SKYRIZI [Suspect]
     Active Substance: RISANKIZUMAB-RZAA
     Indication: Crohn^s disease
     Route: 058
  2. SKYRIZI [Suspect]
     Active Substance: RISANKIZUMAB-RZAA
     Route: 058
  3. HYDROMORPHONE [Concomitant]
     Active Substance: HYDROMORPHONE
     Indication: Product used for unknown indication
  4. contine [Concomitant]
     Indication: Product used for unknown indication

REACTIONS (14)
  - Peripheral swelling [Unknown]
  - Decreased appetite [Unknown]
  - Nausea [Unknown]
  - Crohn^s disease [Unknown]
  - Gingival pain [Unknown]
  - Oral mucosal discolouration [Unknown]
  - Haemoptysis [Unknown]
  - Rales [Unknown]
  - Painful respiration [Unknown]
  - Malaise [Unknown]
  - Oral mucosal exfoliation [Unknown]
  - Fibrin D dimer increased [Unknown]
  - Atrial fibrillation [Unknown]
  - Oesophageal spasm [Unknown]

NARRATIVE: CASE EVENT DATE: 20250211
